FAERS Safety Report 6415788-8 (Version None)
Quarter: 2009Q4

REPORT INFORMATION
  Report Type: 
  Country: None (occurrence: None)
  Receive Date: 20091027
  Receipt Date: 20091015
  Transmission Date: 20100525
  Serious: Yes (Hospitalization)
  Sender: FDA-Public Use
  Company Number: JP-PFIZER INC-2009274580

PATIENT
  Age: 68 Year

DRUGS (4)
  1. SUNITINIB MALATE [Suspect]
     Indication: RENAL CELL CARCINOMA
     Dosage: 50 MG, 1X/DAY
     Route: 048
     Dates: start: 20090706
  2. ACTOS [Concomitant]
     Dosage: UNK
     Route: 048
  3. BEZATOL - SLOW RELEASE [Concomitant]
     Dosage: UNK
     Route: 048
  4. FERROUS FUMARATE [Concomitant]
     Dosage: UNK
     Route: 048

REACTIONS (2)
  - DISSEMINATED INTRAVASCULAR COAGULATION [None]
  - PYELONEPHRITIS [None]
